FAERS Safety Report 14519013 (Version 2)
Quarter: 2018Q1

REPORT INFORMATION
  Report Type: Report from Study
  Country: US (occurrence: US)
  Receive Date: 20180212
  Receipt Date: 20180312
  Transmission Date: 20180509
  Serious: Yes (Other)
  Sender: FDA-Public Use
  Company Number: US-UCBSA-2018003312

PATIENT
  Sex: Female

DRUGS (5)
  1. ZOLOFT [Suspect]
     Active Substance: SERTRALINE HYDROCHLORIDE
     Indication: PRODUCT USED FOR UNKNOWN INDICATION
     Dosage: UNK
  2. LEVETIRACETAM. [Suspect]
     Active Substance: LEVETIRACETAM
     Dosage: 1500 MG DAILY
  3. LEVETIRACETAM. [Suspect]
     Active Substance: LEVETIRACETAM
     Dosage: 2250 MG DAILY
  4. LEVETIRACETAM. [Suspect]
     Active Substance: LEVETIRACETAM
     Indication: SEIZURE
     Dosage: 1500 MG DAILY
  5. TEGRETAL [Concomitant]
     Active Substance: CARBAMAZEPINE
     Indication: PRODUCT USED FOR UNKNOWN INDICATION

REACTIONS (13)
  - Headache [Recovering/Resolving]
  - Drug ineffective [Unknown]
  - Thinking abnormal [Not Recovered/Not Resolved]
  - Intentional product misuse [Unknown]
  - Drug dependence [Unknown]
  - Aura [Not Recovered/Not Resolved]
  - Photopsia [Unknown]
  - Partial seizures [Unknown]
  - Affective disorder [Unknown]
  - Stress [Unknown]
  - Mental disorder [Unknown]
  - Migraine [Unknown]
  - Generalised tonic-clonic seizure [Unknown]
